FAERS Safety Report 21711360 (Version 2)
Quarter: 2022Q4

REPORT INFORMATION
  Report Type: Spontaneous
  Country: JP (occurrence: JP)
  Receive Date: 20221212
  Receipt Date: 20221213
  Transmission Date: 20230113
  Serious: Yes (Other)
  Sender: FDA-Public Use
  Company Number: JP-UCBJ-CD202212682UCBPHAPROD

PATIENT
  Age: 6 Decade
  Sex: Male

DRUGS (1)
  1. LEVETIRACETAM [Suspect]
     Active Substance: LEVETIRACETAM
     Indication: Epilepsy
     Dosage: 1000 MILLIGRAM, 2X/DAY (BID)
     Route: 048

REACTIONS (2)
  - Seizure [Unknown]
  - Renal function test abnormal [Unknown]
